FAERS Safety Report 17826270 (Version 2)
Quarter: 2020Q2

REPORT INFORMATION
  Report Type: Report from Study
  Country: US (occurrence: US)
  Receive Date: 20200526
  Receipt Date: 20200625
  Transmission Date: 20200714
  Serious: Yes (Life-Threatening, Other)
  Sender: FDA-Public Use
  Company Number: US-SA-2020SA102946

PATIENT

DRUGS (8)
  1. ENOXAPARIN [Concomitant]
     Active Substance: ENOXAPARIN
     Indication: THROMBOSIS PROPHYLAXIS
     Dosage: 125 MG, QD
     Route: 058
     Dates: start: 20200328, end: 20200403
  2. NOREPINEPHRINE. [Concomitant]
     Active Substance: NOREPINEPHRINE
     Indication: HYPERTENSION
     Dosage: 8 MG
     Route: 042
  3. SARILUMAB [Suspect]
     Active Substance: SARILUMAB
     Indication: COVID-19
     Dosage: REGN88 OR PLACEBO, 200 MG OR 400 MG INTRAVENOUSLY (IV) SINGLE DOSE, 1X
     Route: 042
     Dates: start: 20200328, end: 20200328
  4. CEFTRIAXONE. [Concomitant]
     Active Substance: CEFTRIAXONE
     Indication: INFECTION PROPHYLAXIS
     Dosage: 2000 MG, QD
     Route: 042
     Dates: start: 20200330, end: 20200401
  5. CEFEPIME [Concomitant]
     Active Substance: CEFEPIME HYDROCHLORIDE
     Indication: INFECTION PROPHYLAXIS
     Dosage: 2000 MG, BID
     Route: 042
     Dates: start: 20200401, end: 20200404
  6. PLAQUENIL [HYDROXYCHLOROQUINE PHOSPHATE] [Concomitant]
     Active Substance: HYDROXYCHLOROQUINE DIPHOSPHATE
     Indication: INFECTION
     Dosage: 200 MG, TID
     Route: 048
     Dates: start: 20200328, end: 20200404
  7. ZINC SULFATE. [Concomitant]
     Active Substance: ZINC SULFATE
     Indication: SUPPLEMENTATION THERAPY
     Dosage: 220 MG, QD
     Dates: start: 20200401
  8. AZITHROMYCIN ANHYDROUS. [Concomitant]
     Active Substance: AZITHROMYCIN ANHYDROUS
     Indication: INFECTION
     Dosage: 250 MG, QD
     Route: 042
     Dates: start: 20200327, end: 20200331

REACTIONS (4)
  - Thrombocytopenia [Recovered/Resolved]
  - Acute kidney injury [Unknown]
  - Bacteraemia [Recovered/Resolved]
  - Aspartate aminotransferase increased [Recovered/Resolved]

NARRATIVE: CASE EVENT DATE: 20200404
